FAERS Safety Report 5017721-2 (Version None)
Quarter: 2006Q2

REPORT INFORMATION
  Report Type: 
  Country: None (occurrence: None)
  Receive Date: 20060525
  Receipt Date: 20060509
  Transmission Date: 20061013
  Serious: Yes (Congenital Anomaly)
  Sender: FDA-Public Use
  Company Number: 8015768

PATIENT
  Age: 7 Day
  Sex: Female

DRUGS (4)
  1. KEPPRA [Suspect]
     Indication: CONVULSION
     Dosage: 1000 MG /D TRP
     Route: 064
     Dates: start: 20040915, end: 20050222
  2. KEPPRA [Suspect]
     Indication: CONVULSION
     Dosage: 2000 MG /D TRP
     Route: 064
     Dates: start: 20050222, end: 20050722
  3. PRENATAL VITAMINS [Concomitant]
  4. HEMOCYTE [Concomitant]

REACTIONS (5)
  - CARDIAC MURMUR [None]
  - CEPHALHAEMATOMA [None]
  - DRUG EXPOSURE DURING PREGNANCY [None]
  - PATENT DUCTUS ARTERIOSUS [None]
  - VENTRICULAR SEPTAL DEFECT [None]
